FAERS Safety Report 18353974 (Version 1)
Quarter: 2020Q4

REPORT INFORMATION
  Report Type: Spontaneous
  Country: US (occurrence: US)
  Receive Date: 20201006
  Receipt Date: 20201006
  Transmission Date: 20210114
  Serious: Yes (Life-Threatening, Hospitalization)
  Sender: FDA-Public Use
  Company Number: None

PATIENT
  Age: 70 Year
  Sex: Male
  Weight: 85 kg

DRUGS (1)
  1. ENOXAPARIN (ENOXAPARIN 80MG/0.8ML INJ, SYRINGE, 0.8ML) [Suspect]
     Active Substance: ENOXAPARIN
     Route: 058
     Dates: start: 20200520, end: 20200529

REACTIONS (3)
  - COVID-19 pneumonia [None]
  - Thrombocytopenia [None]
  - Respiratory failure [None]

NARRATIVE: CASE EVENT DATE: 20200529
